FAERS Safety Report 11087970 (Version 1)
Quarter: 2015Q2

REPORT INFORMATION
  Report Type: Spontaneous
  Country: US (occurrence: None)
  Receive Date: 20150430
  Receipt Date: 20150430
  Transmission Date: 20150821
  Serious: Yes (Other)
  Sender: FDA-Public Use
  Company Number: 1049092-2015-00122

PATIENT

DRUGS (2)
  1. SENSI CARE CLEAR ZINC [Suspect]
     Active Substance: DIMETHICONE\ZINC OXIDE
     Indication: SKIN DISORDER
     Dosage: APPLY AS NEEDED
  2. SENSI CARE CLEAR ZINC [Suspect]
     Active Substance: DIMETHICONE\ZINC OXIDE
     Dosage: APPLY AS NEEDED

REACTIONS (1)
  - Fungal infection [None]
